FAERS Safety Report 5270078-4 (Version None)
Quarter: 2007Q1

REPORT INFORMATION
  Report Type: 
  Country: None (occurrence: None)
  Receive Date: 20070314
  Receipt Date: 20070228
  Transmission Date: 20070707
  Serious: Yes (Hospitalization)
  Sender: FDA-Public Use
  Company Number: 200608IM000485

PATIENT
  Age: 63 Year
  Sex: Female
  Weight: 79.3795 kg

DRUGS (19)
  1. INTERFERON GAMMA-1B [Suspect]
     Indication: IDIOPATHIC PULMONARY FIBROSIS
     Dosage: 200 UG;TIW;SUBCUTANEOUS
     Route: 058
     Dates: start: 20041108, end: 20060816
  2. FLAX SEED [Concomitant]
  3. BLACK COHOSH [Concomitant]
  4. TYLENOL [Concomitant]
  5. COREG [Concomitant]
  6. GLUCOSAMINE [Concomitant]
  7. NASACORT [Concomitant]
  8. LORAZEPAM [Concomitant]
  9. TRAMADOL HCL [Concomitant]
  10. LASIX [Concomitant]
  11. CELEBREX [Concomitant]
  12. PREVACID [Concomitant]
  13. PHENERGAN HCL [Concomitant]
  14. TESSALON [Concomitant]
  15. HYDROCORTISONE [Concomitant]
  16. VITAMIN CAP [Concomitant]
  17. FERROUS SULFATE [Concomitant]
  18. NEURONTIN [Concomitant]
  19. MUCINEX [Concomitant]

REACTIONS (3)
  - ANAEMIA [None]
  - CHEST PAIN [None]
  - ORTHOSTATIC HYPOTENSION [None]
